FAERS Safety Report 21563829 (Version 1)
Quarter: 2022Q4

REPORT INFORMATION
  Report Type: Spontaneous
  Country: US (occurrence: US)
  Receive Date: 20221108
  Receipt Date: 20221108
  Transmission Date: 20230113
  Serious: Yes (Hospitalization, Other)
  Sender: FDA-Public Use
  Company Number: US-SANOFI-01341773

PATIENT
  Age: 68 Year
  Sex: Male

DRUGS (1)
  1. MULTAQ [Suspect]
     Active Substance: DRONEDARONE
     Indication: Product used for unknown indication
     Dosage: UNK

REACTIONS (3)
  - Paralysis [Not Recovered/Not Resolved]
  - Cardiac operation [Not Recovered/Not Resolved]
  - Neck surgery [Unknown]

NARRATIVE: CASE EVENT DATE: 20191101
